FAERS Safety Report 23406102 (Version 1)
Quarter: 2024Q1

REPORT INFORMATION
  Report Type: Spontaneous
  Country: US (occurrence: None)
  Receive Date: 20240114
  Receipt Date: 20240114
  Transmission Date: 20240409
  Serious: Yes (Life-Threatening, Hospitalization, Disabling, Other)
  Sender: FDA-Public Use
  Company Number: None

PATIENT
  Age: 34 Year
  Sex: Female

DRUGS (1)
  1. CYMBALTA [Suspect]
     Active Substance: DULOXETINE HYDROCHLORIDE

REACTIONS (6)
  - Suicidal ideation [None]
  - Migraine [None]
  - Neuralgia [None]
  - Sensory loss [None]
  - Fine motor skill dysfunction [None]
  - Aphasia [None]

NARRATIVE: CASE EVENT DATE: 20240114
